FAERS Safety Report 5893841-5 (Version None)
Quarter: 2008Q3

REPORT INFORMATION
  Report Type: 
  Country: None (occurrence: None)
  Receive Date: 20080923
  Receipt Date: 20071031
  Transmission Date: 20090109
  Serious: No
  Sender: FDA-Public Use
  Company Number: US-ASTRAZENECA-2007UW25340

PATIENT
  Age: 25 Year
  Sex: Male

DRUGS (5)
  1. SEROQUEL XR [Suspect]
     Route: 048
  2. SEROQUEL XR [Suspect]
     Route: 048
  3. CLONIDINE [Concomitant]
  4. ZOLOFT [Concomitant]
     Route: 048
  5. KLONOPIN [Concomitant]

REACTIONS (1)
  - NIGHTMARE [None]
